FAERS Safety Report 19658328 (Version 2)
Quarter: 2021Q3

REPORT INFORMATION
  Report Type: Spontaneous
  Country: VN (occurrence: VN)
  Receive Date: 20210804
  Receipt Date: 20210809
  Transmission Date: 20211014
  Serious: Yes (Other)
  Sender: FDA-Public Use
  Company Number: VN-INCYTE CORPORATION-2021IN006945

PATIENT

DRUGS (3)
  1. JAKAVI [Suspect]
     Active Substance: RUXOLITINIB
     Indication: PRIMARY MYELOFIBROSIS
     Dosage: 10 MG, BID
     Route: 048
     Dates: start: 202008, end: 202012
  2. ENTECAVIR. [Interacting]
     Active Substance: ENTECAVIR
     Indication: PRIMARY MYELOFIBROSIS
     Dosage: 0.5 MG, QD
     Route: 065
  3. JAKAVI [Interacting]
     Active Substance: RUXOLITINIB
     Dosage: 5 MG, BID
     Route: 048
     Dates: start: 202101

REACTIONS (17)
  - Cytogenetic abnormality [Unknown]
  - Pyrexia [Recovered/Resolved]
  - Platelet count decreased [Unknown]
  - Blood uric acid abnormal [Recovering/Resolving]
  - Spinal myelogram abnormal [Unknown]
  - Myeloblast count increased [Unknown]
  - Pruritus [Recovered/Resolved]
  - Fibrosis [Unknown]
  - Splenomegaly [Unknown]
  - Varicose vein [Unknown]
  - Hepatitis B [Recovering/Resolving]
  - Haemoglobin decreased [Unknown]
  - Hyperhidrosis [Recovering/Resolving]
  - White blood cell count decreased [Unknown]
  - Blood lactate dehydrogenase abnormal [Unknown]
  - Labelled drug-drug interaction medication error [Recovering/Resolving]
  - Product use in unapproved indication [Unknown]

NARRATIVE: CASE EVENT DATE: 202010
